FAERS Safety Report 19953383 (Version 2)
Quarter: 2023Q1

REPORT INFORMATION
  Report Type: Other
  Country: AU (occurrence: AU)
  Receive Date: 20211014
  Receipt Date: 20230209
  Transmission Date: 20230417
  Serious: No
  Sender: FDA-Public Use
  Company Number: AU-TOLMAR, INC.-21AU029065

PATIENT
  Age: 73 Year
  Sex: Male

DRUGS (1)
  1. ELIGARD [Suspect]
     Active Substance: LEUPROLIDE ACETATE
     Indication: Prostate cancer
     Dosage: 22.5 MILLIGRAM, Q 3 MONTH
     Dates: start: 20210419

REACTIONS (5)
  - Mood swings [Unknown]
  - Nasopharyngitis [Unknown]
  - Hot flush [Unknown]
  - Lethargy [Unknown]
  - Depression [Unknown]

NARRATIVE: CASE EVENT DATE: 20210701
